FAERS Safety Report 4864701-3 (Version None)
Quarter: 2005Q4

REPORT INFORMATION
  Report Type: 
  Country: None (occurrence: None)
  Receive Date: 20051222
  Receipt Date: 20050330
  Transmission Date: 20060501
  Serious: Yes (Hospitalization, Disabling)
  Sender: FDA-Public Use
  Company Number: US-MERCK-0504USA00152

PATIENT
  Age: 57 Year
  Sex: Male
  Weight: 57 kg

DRUGS (1)
  1. VIOXX [Suspect]
     Indication: LIMB INJURY
     Route: 048
     Dates: start: 20000201, end: 20021120

REACTIONS (19)
  - AORTIC ARTERIOSCLEROSIS [None]
  - ARTHROPATHY [None]
  - ATRIAL FIBRILLATION [None]
  - CHEST DISCOMFORT [None]
  - CHEST PAIN [None]
  - CORONARY ARTERY DISEASE [None]
  - DELIRIUM [None]
  - DISCOMFORT [None]
  - HYPOPERFUSION [None]
  - IDIOPATHIC THROMBOCYTOPENIC PURPURA [None]
  - IMPLANTABLE DEFIBRILLATOR MALFUNCTION [None]
  - MYOCARDIAL INFARCTION [None]
  - OSTEOARTHRITIS [None]
  - PEPTIC ULCER [None]
  - SHOULDER PAIN [None]
  - TESTICULAR DISORDER [None]
  - THYROID DISORDER [None]
  - TONSILLAR DISORDER [None]
  - VENTRICULAR TACHYCARDIA [None]
